FAERS Safety Report 7581096-5 (Version None)
Quarter: 2011Q2

REPORT INFORMATION
  Report Type: 
  Country: None (occurrence: None)
  Receive Date: 20110527
  Receipt Date: 20110302
  Transmission Date: 20111010
  Serious: Yes (Hospitalization)
  Sender: FDA-Public Use
  Company Number: US201102004478

PATIENT
  Age: 75 Year
  Sex: Female
  Weight: 82.5 kg

DRUGS (11)
  1. DIOVAN [Concomitant]
  2. SIMVASTATIN [Concomitant]
  3. NSAID'S [Concomitant]
  4. ACE INHIBITORS [Concomitant]
  5. ASPIRIN [Concomitant]
  6. OMEPRAZOLE [Concomitant]
  7. BYETTA [Suspect]
     Indication: TYPE 2 DIABETES MELLITUS
     Dosage: 5 UG, SUBCUTANEOUS ; 10 UG, 2/D, SUBCUTANEOUS
     Route: 058
  8. COZAAR [Concomitant]
  9. LOSARTAN POTASSIUM [Concomitant]
  10. ATENOLOL [Concomitant]
  11. ACTOS [Concomitant]

REACTIONS (1)
  - PANCREATITIS [None]
